FAERS Safety Report 8606732-3 (Version None)
Quarter: 2012Q3

REPORT INFORMATION
  Report Type: 
  Country: None (occurrence: None)
  Receive Date: 20120809
  Receipt Date: 20120809
  Transmission Date: 20120928
  Serious: Yes (Life-Threatening, Hospitalization)
  Sender: FDA-Public Use
  Company Number: None

PATIENT
  Age: 65 Year
  Sex: Male
  Weight: 113.6 kg

DRUGS (2)
  1. PREDNISONE TAB [Suspect]
     Dosage: MG EVERY DAY PO
     Route: 048
     Dates: start: 20100305, end: 20120518
  2. MELOXICAM [Suspect]
     Dosage: MG EVERY DAY PO
     Route: 048
     Dates: start: 20120403, end: 20120518

REACTIONS (3)
  - GASTRIC ULCER [None]
  - HAEMORRHAGE [None]
  - ANAEMIA [None]
